FAERS Safety Report 4686412-X (Version None)
Quarter: 2005Q2

REPORT INFORMATION
  Report Type: 
  Country: None (occurrence: None)
  Receive Date: 20050606
  Receipt Date: 20050602
  Transmission Date: 20051028
  Serious: Yes (Hospitalization)
  Sender: FDA-Public Use
  Company Number: ZONI002164

PATIENT
  Age: 66 Year
  Sex: Female

DRUGS (4)
  1. EXCEGRAN         (ZONISAMIDE) [Suspect]
     Dosage: 400 MG, 2 IN 1 D, ORAL
     Route: 048
     Dates: start: 20050426, end: 20050505
  2. NORVASC [Suspect]
     Dosage: 1 DOSAGE FORMS, 1 IN 1 D, ORAL
     Route: 048
     Dates: start: 20020101, end: 20050505
  3. ACECOL (TEMOCAPRIL HYDROCHLORIDE) [Suspect]
     Dosage: 1 DOSAGE FORMS, 1 IN 1 D, ORAL
     Route: 048
     Dates: start: 20020101, end: 20050505
  4. KETAS (IBUDILAST) [Suspect]
     Dosage: 30 MG, 1 IN 1 D, ORAL
     Route: 048
     Dates: start: 20020101, end: 20050505

REACTIONS (9)
  - ALANINE AMINOTRANSFERASE INCREASED [None]
  - ASPARTATE AMINOTRANSFERASE INCREASED [None]
  - BLOOD ALKALINE PHOSPHATASE INCREASED [None]
  - BLOOD LACTATE DEHYDROGENASE INCREASED [None]
  - GAMMA-GLUTAMYLTRANSFERASE INCREASED [None]
  - INFECTION [None]
  - NIKOLSKY'S SIGN [None]
  - STEVENS-JOHNSON SYNDROME [None]
  - VIRAL INFECTION [None]
